FAERS Safety Report 11928717 (Version 6)
Quarter: 2016Q4

REPORT INFORMATION
  Report Type: Report from Study
  Country: US (occurrence: US)
  Receive Date: 20160119
  Receipt Date: 20161222
  Transmission Date: 20170206
  Serious: Yes (Death, Hospitalization, Other)
  Sender: FDA-Public Use
  Company Number: US-ACTELION-A-US2015-123120

PATIENT
  Age: 87 Year
  Sex: Male

DRUGS (4)
  1. OPSUMIT [Suspect]
     Active Substance: MACITENTAN
     Indication: PULMONARY ARTERIAL HYPERTENSION
     Dosage: 10 MG, QD
     Route: 048
     Dates: start: 20150812, end: 20151223
  2. OPSUMIT [Suspect]
     Active Substance: MACITENTAN
     Indication: INTERSTITIAL LUNG DISEASE
  3. ESBRIET [Concomitant]
     Active Substance: PIRFENIDONE
     Dosage: 3 TABLETS
  4. ADCIRCA [Concomitant]
     Active Substance: TADALAFIL

REACTIONS (12)
  - Fluid overload [Recovered/Resolved with Sequelae]
  - Transfusion [Recovered/Resolved with Sequelae]
  - Death [Fatal]
  - Fall [Unknown]
  - Head injury [Unknown]
  - Decreased appetite [Unknown]
  - Cardiac failure congestive [Recovered/Resolved with Sequelae]
  - Dyspnoea [Recovered/Resolved with Sequelae]
  - Syncope [Unknown]
  - Hypothyroidism [Recovered/Resolved with Sequelae]
  - Anaemia [Recovered/Resolved with Sequelae]
  - Headache [Unknown]

NARRATIVE: CASE EVENT DATE: 201512
